FAERS Safety Report 5521430-0 (Version None)
Quarter: 2007Q4

REPORT INFORMATION
  Report Type: 
  Country: None (occurrence: None)
  Receive Date: 20071119
  Receipt Date: 20071107
  Transmission Date: 20080405
  Serious: Yes (Other)
  Sender: FDA-Public Use
  Company Number: CA-PFIZER INC-2007094010

PATIENT
  Age: 65 Year
  Sex: Male

DRUGS (9)
  1. CHAMPIX [Suspect]
     Indication: SMOKING CESSATION THERAPY
     Route: 048
  2. EFFEXOR [Concomitant]
  3. OLANZAPINE [Concomitant]
     Indication: POST-TRAUMATIC STRESS DISORDER
  4. OLANZAPINE [Concomitant]
     Indication: NIGHTMARE
  5. NEURONTIN [Concomitant]
     Indication: PAIN
  6. METFORMIN HYDROCHLORIDE [Concomitant]
  7. RAMIPRIL [Concomitant]
  8. ACETYLSALICYLIC ACID SRT [Concomitant]
  9. ZOCOR [Concomitant]

REACTIONS (5)
  - ABNORMAL DREAMS [None]
  - AGGRESSION [None]
  - EUPHORIC MOOD [None]
  - INSOMNIA [None]
  - MANIA [None]
